FAERS Safety Report 22398671 (Version 2)
Quarter: 2023Q2

REPORT INFORMATION
  Report Type: Report from Study
  Country: CO (occurrence: CO)
  Receive Date: 20230602
  Receipt Date: 20230615
  Transmission Date: 20230721
  Serious: Yes (Hospitalization, Other)
  Sender: FDA-Public Use
  Company Number: CO-IPSEN Group, Research and Development-2023-13095

PATIENT
  Age: 49 Year
  Sex: Female
  Weight: 86 kg

DRUGS (5)
  1. LANREOTIDE ACETATE [Suspect]
     Active Substance: LANREOTIDE ACETATE
     Indication: Acromegaly
     Route: 058
     Dates: start: 202201
  2. LANREOTIDE ACETATE [Suspect]
     Active Substance: LANREOTIDE ACETATE
     Dosage: 60 MG, 1 UNIT EVERY 28 DAYS
     Route: 058
     Dates: start: 20220303
  3. ROSUVASTATIN [Concomitant]
     Active Substance: ROSUVASTATIN
     Indication: Blood cholesterol
     Dosage: 40 MG, 1 TABLET EVERY 24 HOURS
     Route: 048
     Dates: start: 20220914
  4. ASPIRIN [Concomitant]
     Active Substance: ASPIRIN
     Indication: Angiopathy
     Dosage: 40 MG, 1 TABLET EVERY 24 HOURS
     Route: 048
     Dates: start: 20220914
  5. BISOPROLOL [Concomitant]
     Active Substance: BISOPROLOL
     Indication: Cardiac disorder
     Dosage: 2.5 MG 1 TABLET EVERY 24 HOURS
     Route: 048
     Dates: start: 20220914

REACTIONS (2)
  - Vascular device infection [Recovered/Resolved]
  - Bradycardia [Recovered/Resolved]

NARRATIVE: CASE EVENT DATE: 20220911
